FAERS Safety Report 5117650-X (Version None)
Quarter: 2006Q3

REPORT INFORMATION
  Report Type: 
  Country: None (occurrence: None)
  Receive Date: 20060926
  Receipt Date: 20060905
  Transmission Date: 20061208
  Serious: Yes (Hospitalization)
  Sender: FDA-Public Use
  Company Number: FR200609000033

PATIENT
  Age: 56 Year
  Sex: Female

DRUGS (2)
  1. FORTEO [Suspect]
     Indication: OSTEOPOROSIS
     Dosage: 20 UG, DAILY (1/D), SUBCUTANEOUS
     Route: 058
     Dates: start: 20060816, end: 20060829
  2. FORTEO [Concomitant]

REACTIONS (5)
  - ANOREXIA [None]
  - FLATULENCE [None]
  - INSOMNIA [None]
  - PYREXIA [None]
  - WEIGHT DECREASED [None]
